FAERS Safety Report 5565855-6 (Version None)
Quarter: 2007Q4

REPORT INFORMATION
  Report Type: 
  Country: None (occurrence: None)
  Receive Date: 20071213
  Receipt Date: 20071205
  Transmission Date: 20080405
  Serious: Yes (Other)
  Sender: FDA-Public Use
  Company Number: 2007336702

PATIENT
  Age: 56 Year
  Sex: Male

DRUGS (4)
  1. NICOTINE [Suspect]
     Indication: SMOKING CESSATION THERAPY
     Dosage: 15 MG PATCH (15 MG, 1 IN 16 HR), TRANSDERMAL
     Route: 062
     Dates: start: 20071025, end: 20071107
  2. ASPIRIN [Concomitant]
  3. SIMPLE LINCTUS (AMARANTH, ANISE WATER, CHLOROFORM SPIRIT, CITRIC ACID [Concomitant]
  4. SIMVASTATIN [Concomitant]

REACTIONS (1)
  - TACHYCARDIA [None]
